FAERS Safety Report 15676705 (Version 1)
Quarter: 2018Q4

REPORT INFORMATION
  Report Type: Spontaneous
  Country: FR (occurrence: FR)
  Receive Date: 20181130
  Receipt Date: 20181130
  Transmission Date: 20190205
  Serious: Yes (Other)
  Sender: FDA-Public Use
  Company Number: PHHY2018FR165862

PATIENT
  Age: 66 Year
  Sex: Male

DRUGS (1)
  1. PACLITAXEL. [Suspect]
     Active Substance: PACLITAXEL
     Indication: SQUAMOUS CELL CARCINOMA OF LUNG
     Dosage: 80 MG/M2, UNK
     Route: 041

REACTIONS (5)
  - Purulent discharge [Unknown]
  - Periarticular thenar erythema with onycholysis [Unknown]
  - Nail bed infection [Unknown]
  - Onycholysis [Unknown]
  - Erythema [Unknown]
